FAERS Safety Report 22278016 (Version 1)
Quarter: 2023Q2

REPORT INFORMATION
  Report Type: Spontaneous
  Country: US (occurrence: US)
  Receive Date: 20230503
  Receipt Date: 20230503
  Transmission Date: 20230722
  Serious: Yes (Other)
  Sender: FDA-Public Use
  Company Number: US-SUN PHARMACEUTICAL INDUSTRIES LTD-2023R1-387045

PATIENT
  Age: 34 Year
  Sex: Male

DRUGS (3)
  1. HYDROCORTISONE [Suspect]
     Active Substance: HYDROCORTISONE
     Indication: Primary hyperthyroidism
     Dosage: 100 MILLIGRAM, TID
     Route: 042
  2. PROPRANOLOL [Concomitant]
     Active Substance: PROPRANOLOL HYDROCHLORIDE
     Indication: Primary hyperthyroidism
     Dosage: 40 MILLIGRAM, TID
     Route: 048
  3. METHIMAZOLE [Concomitant]
     Active Substance: METHIMAZOLE
     Indication: Primary hyperthyroidism
     Dosage: 30 MILLIGRAM, BID
     Route: 048

REACTIONS (1)
  - Thyrotoxic periodic paralysis [Recovered/Resolved]
